FAERS Safety Report 8111208-6 (Version None)
Quarter: 2012Q1

REPORT INFORMATION
  Report Type: 
  Country: None (occurrence: None)
  Receive Date: 20120202
  Receipt Date: 20120202
  Transmission Date: 20120608
  Serious: Yes (Other)
  Sender: FDA-Public Use
  Company Number: None

PATIENT
  Age: 64 Year
  Sex: Female
  Weight: 72.5755 kg

DRUGS (3)
  1. AMLODIPINE BESYLATE [Suspect]
     Indication: HYPERTENSION
     Dosage: 2.5 DAILY PO
     Route: 048
     Dates: start: 20111213
  2. AMLODIPINE BESYLATE [Suspect]
     Indication: HYPERTENSION
     Dosage: 2.5 DAILY PO
     Route: 048
     Dates: start: 20111218
  3. GENERIC - LOSARTAN [Suspect]
     Indication: HYPERTENSION
     Dosage: 100MG DAILY PO
     Route: 048
     Dates: start: 20111213, end: 20111218

REACTIONS (5)
  - HEADACHE [None]
  - VERTIGO [None]
  - ASTHENIA [None]
  - GASTROINTESTINAL HYPERMOTILITY [None]
  - DIZZINESS POSTURAL [None]
